FAERS Safety Report 6979584-5 (Version None)
Quarter: 2010Q3

REPORT INFORMATION
  Report Type: 
  Country: None (occurrence: None)
  Receive Date: 20100910
  Receipt Date: 20100910
  Transmission Date: 20110219
  Serious: Yes (Disabling)
  Sender: FDA-Public Use
  Company Number: None

PATIENT
  Age: 37 Year
  Sex: Female
  Weight: 59.8748 kg

DRUGS (2)
  1. CIPROFLOXACIN [Suspect]
     Indication: URINARY TRACT INFECTION
     Dosage: 500MG 2X DAILY PO
     Route: 048
     Dates: start: 20100903, end: 20100907
  2. DIFLUCAN [Suspect]

REACTIONS (7)
  - ARTHRALGIA [None]
  - ARTHRITIS [None]
  - DIZZINESS [None]
  - GENITAL BURNING SENSATION [None]
  - MOVEMENT DISORDER [None]
  - SKIN LESION [None]
  - TENDONITIS [None]
